FAERS Safety Report 4395486-5 (Version None)
Quarter: 2004Q3

REPORT INFORMATION
  Report Type: 
  Country: None (occurrence: None)
  Receive Date: 20040707
  Receipt Date: 20040621
  Transmission Date: 20050211
  Serious: Yes (Death)
  Sender: FDA-Public Use
  Company Number: S04-CAN-02641-01

PATIENT
  Age: 67 Year
  Sex: Male

DRUGS (11)
  1. CELEXA [Suspect]
     Indication: AGITATION
     Dosage: 20 MG QD PO
     Route: 048
     Dates: start: 20030501, end: 20030610
  2. PROZAC [Suspect]
     Indication: AGITATION
     Dosage: 20 MG QD PO
     Route: 048
     Dates: start: 20030523, end: 20030603
  3. NADOLOL [Concomitant]
  4. AMLODIPINE [Concomitant]
  5. HYTRIN [Concomitant]
  6. ZOCOR (SIMVASTATIN (SIMVASTATIN) [Concomitant]
  7. ALLOPURINOL [Concomitant]
  8. IMOVANE (ZOPICLONE) [Concomitant]
  9. CLONAZEPAM [Concomitant]
  10. METRONIDAZOLE [Concomitant]
  11. NITROLINGUAL (GLYCERYL TRINITRATE) [Concomitant]

REACTIONS (34)
  - ACUTE PSYCHOSIS [None]
  - AFFECT LABILITY [None]
  - AGITATION [None]
  - ANOREXIA [None]
  - ANXIETY [None]
  - AORTIC INJURY [None]
  - BLOOD PRESSURE INCREASED [None]
  - COGNITIVE DISORDER [None]
  - COMPLETED SUICIDE [None]
  - CONDITION AGGRAVATED [None]
  - CONFUSIONAL STATE [None]
  - DELUSION [None]
  - DEMENTIA ALZHEIMER'S TYPE [None]
  - DISTURBANCE IN ATTENTION [None]
  - DRUG INTERACTION [None]
  - EXSANGUINATION [None]
  - FEAR [None]
  - FEELING OF DESPAIR [None]
  - FEELINGS OF WORTHLESSNESS [None]
  - GENERALISED ANXIETY DISORDER [None]
  - HALLUCINATION, VISUAL [None]
  - HEART RATE INCREASED [None]
  - ILLUSION [None]
  - IMPULSIVE BEHAVIOUR [None]
  - INSOMNIA [None]
  - INTENTIONAL SELF-INJURY [None]
  - LABILE HYPERTENSION [None]
  - LOOSE ASSOCIATIONS [None]
  - NAUSEA [None]
  - PERSONALITY CHANGE [None]
  - PSYCHOMOTOR AGITATION [None]
  - SERUM SEROTONIN INCREASED [None]
  - SIMPLE PARTIAL SEIZURES [None]
  - TEMPORAL LOBE EPILEPSY [None]
